FAERS Safety Report 9097114 (Version 1)
Quarter: 2013Q1

REPORT INFORMATION
  Report Type: Spontaneous
  Country: US (occurrence: None)
  Receive Date: 20130125
  Receipt Date: 20130125
  Transmission Date: 20140127
  Serious: Yes (Hospitalization)
  Sender: FDA-Public Use
  Company Number: 20130018

PATIENT
  Age: 54 Year
  Sex: Male

DRUGS (5)
  1. EPINEPHRINE INJECTION, USP (1071-250 1 MG/ML [Suspect]
     Indication: ANAPHYLACTIC REACTION
     Route: 030
  2. DEAMETHASONE SODIUM PHOSPHATE INJECTION, USP (4901-25) (DEXAMETHASONE SODIUM PHOSPHATE) [Concomitant]
  3. CIPROFLOXACIN [Concomitant]
  4. DIPHENHYDRAMINE [Concomitant]
  5. METRONIDAZOLE [Concomitant]

REACTIONS (3)
  - Arteriospasm coronary [None]
  - Acute myocardial infarction [None]
  - Anaphylactic reaction [None]
